FAERS Safety Report 5740223-2 (Version None)
Quarter: 2008Q2

REPORT INFORMATION
  Report Type: 
  Country: None (occurrence: None)
  Receive Date: 20080513
  Receipt Date: 20080505
  Transmission Date: 20081010
  Serious: Yes (Other)
  Sender: FDA-Public Use
  Company Number: 2008-02823

PATIENT
  Age: 9 Year
  Sex: Female

DRUGS (1)
  1. CLONIDINE [Suspect]
     Indication: ATTENTION DEFICIT/HYPERACTIVITY DISORDER
     Dosage: 0.025 MG, BID, ORAL
     Route: 048

REACTIONS (1)
  - STATUS EPILEPTICUS [None]
